FAERS Safety Report 13815607 (Version 1)
Quarter: 2017Q3

REPORT INFORMATION
  Report Type: Spontaneous
  Country: CN (occurrence: CN)
  Receive Date: 20170731
  Receipt Date: 20170731
  Transmission Date: 20171127
  Serious: Yes (Other)
  Sender: FDA-Public Use
  Company Number: CN-COVIS PHARMA B.V.-2017COV00111

PATIENT
  Age: 67 Year
  Sex: Male

DRUGS (6)
  1. RABEPRAZOLE [Concomitant]
     Active Substance: RABEPRAZOLE
     Indication: GASTROOESOPHAGEAL REFLUX DISEASE
     Dosage: UNK
     Dates: start: 201702, end: 201705
  2. NIFEDIPINE. [Concomitant]
     Active Substance: NIFEDIPINE
     Indication: HYPERTENSION
  3. ASPIRIN EC [Concomitant]
     Active Substance: ASPIRIN
     Dosage: 1 TABLETS, 1X/DAY
  4. OMEPRAZOLE SODIUM [Suspect]
     Active Substance: OMEPRAZOLE SODIUM
     Route: 042
  5. BRILINTA [Suspect]
     Active Substance: TICAGRELOR
     Dosage: 1 TABLETS, 2X/DAY
     Route: 048
  6. PRILOSEC [Suspect]
     Active Substance: OMEPRAZOLE MAGNESIUM
     Indication: GASTROINTESTINAL DISORDER
     Dosage: UNK, 1X/DAY (IN THE MORNING)
     Route: 048

REACTIONS (6)
  - Abdominal distension [Recovered/Resolved]
  - Contusion [Recovered/Resolved]
  - Gastric haemorrhage [Unknown]
  - Myocardial infarction [Recovered/Resolved]
  - Dyspnoea [Recovering/Resolving]
  - Gingival bleeding [Unknown]

NARRATIVE: CASE EVENT DATE: 2017
